FAERS Safety Report 10361792 (Version 7)
Quarter: 2016Q1

REPORT INFORMATION
  Report Type: Report from Study
  Country: BR (occurrence: BR)
  Receive Date: 20140805
  Receipt Date: 20160209
  Transmission Date: 20160525
  Serious: Yes (Hospitalization, Other)
  Sender: FDA-Public Use
  Company Number: BR-ABBVIE-14P-020-1266468-00

PATIENT
  Age: 49 Year
  Sex: Female
  Weight: 65 kg

DRUGS (14)
  1. LUFTAL [Concomitant]
     Active Substance: DIMETHICONE
     Indication: FLATULENCE
     Dosage: 35 DROPS
     Route: 048
     Dates: start: 20140702
  2. ADDERA D3 [Concomitant]
     Active Substance: CHOLECALCIFEROL
     Indication: PRODUCT USED FOR UNKNOWN INDICATION
     Route: 048
     Dates: start: 201412
  3. FLORATIL [Concomitant]
     Indication: CONSTIPATION
  4. HUMIRA [Suspect]
     Active Substance: ADALIMUMAB
     Indication: CROHN^S DISEASE
     Route: 058
     Dates: start: 20120201
  5. MAGNOPYROL [Concomitant]
     Indication: HEADACHE
     Route: 048
     Dates: start: 20080701
  6. CALCITRANS [Concomitant]
     Active Substance: CALCIUM GLUCONATE
     Indication: MINERAL SUPPLEMENTATION
     Route: 048
     Dates: start: 201412
  7. EUTHYROX [Concomitant]
     Active Substance: LEVOTHYROXINE SODIUM
     Indication: THYROID DISORDER
     Route: 048
  8. LUFTAL [Concomitant]
     Active Substance: DIMETHICONE
     Indication: CONSTIPATION
  9. OMEPRAZOLE. [Concomitant]
     Active Substance: OMEPRAZOLE
     Indication: GASTRITIS
     Route: 048
     Dates: start: 20040701
  10. FOLIC ACID. [Concomitant]
     Active Substance: FOLIC ACID
     Indication: PRODUCT USED FOR UNKNOWN INDICATION
     Route: 048
     Dates: start: 201412
  11. PREDSIM [Concomitant]
     Active Substance: PREDNISOLONE
     Indication: PRODUCT USED FOR UNKNOWN INDICATION
     Route: 048
     Dates: start: 201412
  12. DORFLEX [Concomitant]
     Active Substance: CAFFEINE\DIPYRONE\ORPHENADRINE
     Indication: MYALGIA
     Route: 048
     Dates: start: 20080701
  13. LORAZEPAM. [Concomitant]
     Active Substance: LORAZEPAM
     Indication: INSOMNIA
     Dosage: ALTERNATE NIGHTS
     Route: 048
     Dates: start: 20110701
  14. FLORATIL [Concomitant]
     Indication: FLATULENCE
     Route: 048
     Dates: start: 20140702, end: 20140728

REACTIONS (18)
  - Inflammation [Unknown]
  - Diarrhoea [Unknown]
  - Vomiting [Recovered/Resolved]
  - Neuropathic muscular atrophy [Not Recovered/Not Resolved]
  - Protein deficiency [Recovered/Resolved]
  - Immunodeficiency [Recovered/Resolved]
  - Hypoalbuminaemia [Recovered/Resolved]
  - Swelling [Recovered/Resolved]
  - Fluid retention [Recovered/Resolved]
  - Pleural effusion [Recovered/Resolved]
  - Pulmonary oedema [Recovered/Resolved]
  - Thrombosis [Recovered/Resolved]
  - Drug ineffective [Unknown]
  - Neuropathy peripheral [Not Recovered/Not Resolved]
  - Thrombosis [Recovered/Resolved]
  - Vomiting [Recovered/Resolved]
  - Pulmonary oedema [Unknown]
  - Hypovitaminosis [Unknown]

NARRATIVE: CASE EVENT DATE: 201407
